FAERS Safety Report 19815035 (Version 1)
Quarter: 2021Q3

REPORT INFORMATION
  Report Type: Spontaneous
  Country: SE (occurrence: SE)
  Receive Date: 20210909
  Receipt Date: 20210909
  Transmission Date: 20211014
  Serious: Yes (Hospitalization, Other)
  Sender: FDA-Public Use
  Company Number: NVSC2021SE202339

PATIENT
  Sex: Male

DRUGS (1)
  1. ADALIMUMAB [Suspect]
     Active Substance: ADALIMUMAB
     Indication: INFLAMMATORY BOWEL DISEASE
     Dosage: 40 MG, Q2W
     Route: 058

REACTIONS (4)
  - Renal amyloidosis [Unknown]
  - Therapeutic product effect incomplete [Unknown]
  - Oesophagitis [Unknown]
  - Fungal infection [Unknown]
